FAERS Safety Report 21623751 (Version 1)
Quarter: 2022Q4

REPORT INFORMATION
  Report Type: Spontaneous
  Country: US (occurrence: None)
  Receive Date: 20221119
  Receipt Date: 20221119
  Transmission Date: 20230113
  Serious: Yes (Hospitalization)
  Sender: FDA-Public Use
  Company Number: None

PATIENT
  Sex: Male

DRUGS (12)
  1. HUMIRA [Suspect]
     Active Substance: ADALIMUMAB
     Indication: Rheumatoid arthritis
     Dosage: OTHER QUANTITY : 40 MG/0.4ML;?FREQUENCY : EVERY OTHER WEEK;?
     Route: 058
     Dates: start: 20220413
  2. HUMIRA [Suspect]
     Active Substance: ADALIMUMAB
     Dosage: OTHER QUANTITY : 40 MG (0.4ML);?FREQUENCY : EVERY OTHER WEEK;?
     Route: 058
  3. ATORVASTATIN [Concomitant]
  4. FISH OIL [Concomitant]
     Active Substance: FISH OIL
  5. FUROSEMIDE [Concomitant]
     Active Substance: FUROSEMIDE
  6. GABAPENTIN [Concomitant]
     Active Substance: GABAPENTIN
  7. ISONIAZID [Concomitant]
     Active Substance: ISONIAZID
  8. METHOTREXATE [Concomitant]
     Active Substance: METHOTREXATE
  9. MULTIVITAMIN [Concomitant]
  10. SPIRONOLACTONE [Concomitant]
     Active Substance: SPIRONOLACTONE
  11. PYRIDOXINE [Concomitant]
     Active Substance: PYRIDOXINE
  12. WARFARIN [Concomitant]

REACTIONS (2)
  - Hospitalisation [None]
  - Product dose omission issue [None]
